FAERS Safety Report 10097666 (Version 1)
Quarter: 2014Q2

REPORT INFORMATION
  Report Type: Spontaneous
  Country: US (occurrence: US)
  Receive Date: 20140423
  Receipt Date: 20140423
  Transmission Date: 20141212
  Serious: No
  Sender: FDA-Public Use
  Company Number: US-BIOGENIDEC-2014BI034420

PATIENT
  Age: 54 Year
  Sex: Female
  Weight: 49 kg

DRUGS (4)
  1. TECFIDERA [Suspect]
     Indication: PRODUCT USED FOR UNKNOWN INDICATION
     Dates: start: 20130622
  2. TECFIDERA [Suspect]
     Indication: PRODUCT USED FOR UNKNOWN INDICATION
     Dates: start: 201312
  3. AMPYRA [Concomitant]
     Indication: GAIT DISTURBANCE
     Dates: start: 20131015, end: 201312
  4. ACYCLOVIR [Concomitant]

REACTIONS (7)
  - Nasal congestion [Unknown]
  - Dyspnoea [Unknown]
  - Sinus disorder [Unknown]
  - Insomnia [Unknown]
  - Decreased appetite [Recovered/Resolved]
  - Flushing [Recovered/Resolved]
  - Nausea [Recovered/Resolved]
